FAERS Safety Report 4309977-6 (Version None)
Quarter: 2004Q1

REPORT INFORMATION
  Report Type: 
  Country: None (occurrence: None)
  Receive Date: 20040227
  Receipt Date: 20031120
  Transmission Date: 20041129
  Serious: No
  Sender: FDA-Public Use
  Company Number: FABR-10383

PATIENT
  Age: 12 Year
  Sex: Male
  Weight: 51 kg

DRUGS (3)
  1. FABRAZYME [Suspect]
     Indication: FABRY'S DISEASE
     Dosage: 51 MG Q2WKS IV
     Route: 042
     Dates: start: 20030926
  2. TYLENOL (CAPLET) [Concomitant]
  3. CLARITIN [Concomitant]

REACTIONS (3)
  - CHILLS [None]
  - INJECTION SITE RASH [None]
  - PYREXIA [None]
